FAERS Safety Report 4988000-4 (Version None)
Quarter: 2006Q2

REPORT INFORMATION
  Report Type: 
  Country: None (occurrence: None)
  Receive Date: 20060426
  Receipt Date: 20060404
  Transmission Date: 20061013
  Serious: Yes (Life-Threatening, Hospitalization, Other)
  Sender: FDA-Public Use
  Company Number: 2006007718

PATIENT
  Age: 84 Year
  Sex: Female

DRUGS (12)
  1. ATARAX [Suspect]
     Indication: ILL-DEFINED DISORDER
     Dosage: 25 MG (1 D), ORAL
     Route: 048
     Dates: end: 20041001
  2. ALDACTONE [Suspect]
     Indication: HYPERTENSION
     Dosage: 25 MG (1 D)
     Dates: end: 20041001
  3. CLONAZEPAM [Suspect]
     Indication: ILL-DEFINED DISORDER
     Dosage: ORAL
     Route: 048
     Dates: end: 20041001
  4. PARACETAMOL/CODEINE (PARACETAMOL, CODEINE) [Suspect]
     Indication: ILL-DEFINED DISORDER
     Dosage: 8 TABLETS (1 D), ORAL
     Route: 048
     Dates: end: 20041001
  5. PAROXETINE [Suspect]
     Indication: ILL-DEFINED DISORDER
     Dosage: 1 TABLET  (1 D), ORAL
     Route: 048
     Dates: end: 20041001
  6. LISINOPRIL [Suspect]
     Indication: HYPERTENSION
     Dosage: 20 MG (1 D)
     Dates: end: 20041001
  7. ALLOPURINOL [Concomitant]
  8. PREVISCAN (FLUINDIONE) [Concomitant]
  9. HYPERIUM (RILMENIDINE) [Concomitant]
  10. LASIX [Concomitant]
  11. EUPRESSYL (URAPIDIL) [Concomitant]
  12. CORDARONE [Concomitant]

REACTIONS (7)
  - COMA [None]
  - CREPITATIONS [None]
  - INTERNATIONAL NORMALISED RATIO INCREASED [None]
  - LEUKOCYTURIA [None]
  - NEUTROPHIL COUNT INCREASED [None]
  - OEDEMA PERIPHERAL [None]
  - RESPIRATORY ACIDOSIS [None]
